FAERS Safety Report 20925848 (Version 1)
Quarter: 2022Q2

REPORT INFORMATION
  Report Type: Spontaneous
  Country: GR (occurrence: GR)
  Receive Date: 20220607
  Receipt Date: 20220607
  Transmission Date: 20220720
  Serious: Yes (Other)
  Sender: FDA-Public Use
  Company Number: GR-SUN PHARMACEUTICAL INDUSTRIES LTD-2022R1-337786

PATIENT
  Age: 63 Year
  Sex: Female

DRUGS (4)
  1. VANCOMYCIN [Suspect]
     Active Substance: VANCOMYCIN
     Indication: Pneumonia
     Dosage: UNK
  2. VANCOMYCIN [Suspect]
     Active Substance: VANCOMYCIN
     Indication: Chronic obstructive pulmonary disease
     Dosage: 1 GRAM, BID
  3. MEROPENEM [Suspect]
     Active Substance: MEROPENEM
     Indication: Chronic obstructive pulmonary disease
     Dosage: 2 GRAM, Q8H (2 GRAM, TID)
  4. MEROPENEM [Suspect]
     Active Substance: MEROPENEM
     Indication: Pneumonia
     Dosage: UNK

REACTIONS (1)
  - Therapeutic product effect incomplete [Unknown]
